FAERS Safety Report 22351845 (Version 1)
Quarter: 2023Q2

REPORT INFORMATION
  Report Type: Spontaneous
  Country: US (occurrence: None)
  Receive Date: 20230522
  Receipt Date: 20230522
  Transmission Date: 20230722
  Serious: No
  Sender: FDA-Public Use
  Company Number: None

PATIENT
  Sex: Female

DRUGS (1)
  1. HUMIRA [Suspect]
     Active Substance: ADALIMUMAB
     Indication: Inflammatory bowel disease
     Dosage: 40MG EVERY 14 DAYS UNDER THE SKIN?
     Route: 058
     Dates: start: 20230117

REACTIONS (5)
  - Abdominal pain upper [None]
  - Pyrexia [None]
  - Nausea [None]
  - Intestinal obstruction [None]
  - Condition aggravated [None]
